FAERS Safety Report 8244972-6 (Version None)
Quarter: 2012Q1

REPORT INFORMATION
  Report Type: 
  Country: None (occurrence: None)
  Receive Date: 20120329
  Receipt Date: 20111021
  Transmission Date: 20120608
  Serious: No
  Sender: FDA-Public Use
  Company Number: US-MYLANLABS-2011S1022234

PATIENT
  Sex: Female

DRUGS (17)
  1. IMDUR [Concomitant]
  2. LISINOPRIL [Concomitant]
  3. ZOFRAN [Concomitant]
  4. CARDIZEM [Concomitant]
  5. SYNTHROID [Concomitant]
  6. CRESTOR [Concomitant]
  7. DEXILANT [Concomitant]
  8. WELLBUTRIN [Concomitant]
  9. REGLAN [Concomitant]
  10. PLAVIX [Concomitant]
  11. ZETIA [Concomitant]
  12. FENTANYL-100 [Suspect]
     Indication: PAIN
     Dosage: Q72H
     Route: 062
  13. RANIXAL [Concomitant]
  14. NITROGLYCERIN [Concomitant]
     Route: 060
  15. PHENERGAN HCL [Concomitant]
  16. COUMADIN [Concomitant]
  17. BONIVA [Concomitant]

REACTIONS (2)
  - APPLICATION SITE PAIN [None]
  - DRUG WITHDRAWAL SYNDROME [None]
